FAERS Safety Report 25780748 (Version 1)
Quarter: 2025Q3

REPORT INFORMATION
  Report Type: Spontaneous
  Country: GB (occurrence: GB)
  Receive Date: 20250909
  Receipt Date: 20250909
  Transmission Date: 20251021
  Serious: Yes (Other)
  Sender: ALEXION PHARMACEUTICALS
  Company Number: None

PATIENT
  Age: 23 Year
  Sex: Male

DRUGS (3)
  1. BUDESONIDE [Suspect]
     Active Substance: BUDESONIDE
     Indication: Asthma
     Dosage: ONCE A DAY
     Dates: start: 20250901, end: 20250905
  2. CITALOPRAM [Concomitant]
     Active Substance: CITALOPRAM
     Route: 065
  3. ATOMOXETINE [Concomitant]
     Active Substance: ATOMOXETINE
     Route: 065

REACTIONS (4)
  - Influenza [Not Recovered/Not Resolved]
  - Oropharyngeal pain [Not Recovered/Not Resolved]
  - Headache [Not Recovered/Not Resolved]
  - Sinusitis [Not Recovered/Not Resolved]

NARRATIVE: CASE EVENT DATE: 20250904
